FAERS Safety Report 18575339 (Version 1)
Quarter: 2020Q4

REPORT INFORMATION
  Report Type: Spontaneous
  Country: SE (occurrence: SE)
  Receive Date: 20201203
  Receipt Date: 20201203
  Transmission Date: 20210114
  Serious: Yes (Death)
  Sender: FDA-Public Use
  Company Number: SE-TEVA-2020-SE-1854371

PATIENT
  Age: 79 Year
  Sex: Male

DRUGS (11)
  1. OXASCAND [Concomitant]
     Active Substance: OXAZEPAM
  2. FURIX [Concomitant]
  3. TRULICITY [Suspect]
     Active Substance: DULAGLUTIDE
     Indication: TYPE 2 DIABETES MELLITUS
     Route: 058
     Dates: start: 20201013, end: 202011
  4. FOLACIN [Concomitant]
  5. DUROFERON [Concomitant]
     Active Substance: FERROUS SULFATE
  6. METFORMIN [Suspect]
     Active Substance: METFORMIN HYDROCHLORIDE
     Indication: TYPE 2 DIABETES MELLITUS
     Dosage: 2000 MILLIGRAMS
     Route: 048
  7. ATORVASTATIN [Concomitant]
     Active Substance: ATORVASTATIN
  8. BISOPROLOL [Concomitant]
     Active Substance: BISOPROLOL
  9. ELIQUIS [Concomitant]
     Active Substance: APIXABAN
  10. MIRTAZAPINE. [Concomitant]
     Active Substance: MIRTAZAPINE
  11. INSPRA [Concomitant]
     Active Substance: EPLERENONE

REACTIONS (2)
  - Decreased appetite [Fatal]
  - Fatigue [Fatal]

NARRATIVE: CASE EVENT DATE: 20201028
